FAERS Safety Report 5415974-X (Version None)
Quarter: 2007Q3

REPORT INFORMATION
  Report Type: 
  Country: None (occurrence: None)
  Receive Date: 20070815
  Receipt Date: 20070806
  Transmission Date: 20080115
  Serious: Yes (Other)
  Sender: FDA-Public Use
  Company Number: US-PFIZER INC-2007065778

PATIENT
  Sex: Female
  Weight: 62.272 kg

DRUGS (5)
  1. LIPITOR [Suspect]
     Indication: BLOOD CHOLESTEROL INCREASED
  2. ATACAND [Concomitant]
  3. MULTIVITAMIN [Concomitant]
  4. VITAMIN B-12 [Concomitant]
  5. COZAAR [Concomitant]

REACTIONS (8)
  - AGEUSIA [None]
  - ANOSMIA [None]
  - ASTHENIA [None]
  - BLOOD PRESSURE DECREASED [None]
  - DIZZINESS [None]
  - DYSGEUSIA [None]
  - FATIGUE [None]
  - PAROSMIA [None]
